FAERS Safety Report 8223440-1 (Version None)
Quarter: 2012Q1

REPORT INFORMATION
  Report Type: 
  Country: None (occurrence: None)
  Receive Date: 20120316
  Receipt Date: 20120302
  Transmission Date: 20120608
  Serious: Yes (Hospitalization)
  Sender: FDA-Public Use
  Company Number: 2012-1117

PATIENT
  Sex: Female

DRUGS (6)
  1. APOCILLIN (PHENOXYMETHYLPENICILLIN POTASSIUM) [Concomitant]
  2. BOTULINUM TOXIN TYPE A [Suspect]
     Indication: SKIN WRINKLING
     Dosage: NOT REPORTED, INTRAMUSCULAR
     Route: 030
     Dates: start: 20120215, end: 20120215
  3. BOTULINUM TOXIN TYPE A [Suspect]
     Indication: OFF LABEL USE
     Dosage: NOT REPORTED, INTRAMUSCULAR
     Route: 030
     Dates: start: 20120215, end: 20120215
  4. LEVOTHYROXINE SODIUM [Concomitant]
  5. VALTREX [Concomitant]
  6. AZITHROMAX (AZITHROMYCIN) [Concomitant]

REACTIONS (10)
  - VOMITING [None]
  - PHOTOPHOBIA [None]
  - FACIAL PAIN [None]
  - FATIGUE [None]
  - HYPOAESTHESIA [None]
  - MYALGIA [None]
  - NAUSEA [None]
  - HEADACHE [None]
  - SINUSITIS [None]
  - FACIAL PARESIS [None]
